FAERS Safety Report 11230058 (Version 1)
Quarter: 2015Q3

REPORT INFORMATION
  Report Type: Spontaneous
  Country: CA (occurrence: CA)
  Receive Date: 20150701
  Receipt Date: 20150701
  Transmission Date: 20151125
  Serious: Yes (Life-Threatening, Hospitalization)
  Sender: FDA-Public Use
  Company Number: CA-UCBSA-2015021015

PATIENT
  Age: 48 Year
  Sex: Male
  Weight: 55 kg

DRUGS (3)
  1. PHENYTOIN. [Interacting]
     Active Substance: PHENYTOIN
     Indication: PRODUCT USED FOR UNKNOWN INDICATION
     Dosage: 400 MG, ONCE DAILY (QD)
  2. KEPPRA [Suspect]
     Active Substance: LEVETIRACETAM
     Indication: PRODUCT USED FOR UNKNOWN INDICATION
     Dosage: 125 MG, 2X/DAY (BID)
  3. KEPPRA [Interacting]
     Active Substance: LEVETIRACETAM
     Dosage: 250 MG, 2X/DAY (BID)

REACTIONS (4)
  - Lethargy [Unknown]
  - Toxicity to various agents [Unknown]
  - Drug interaction [Unknown]
  - Unresponsive to stimuli [Unknown]
